FAERS Safety Report 18205421 (Version 1)
Quarter: 2020Q3

REPORT INFORMATION
  Report Type: Spontaneous
  Country: US (occurrence: US)
  Receive Date: 20200828
  Receipt Date: 20200828
  Transmission Date: 20201103
  Serious: Yes (Other)
  Sender: FDA-Public Use
  Company Number: US-ASTRAZENECA-2020SF06504

PATIENT
  Age: 51 Year
  Sex: Female
  Weight: 81.6 kg

DRUGS (8)
  1. ESOMEPRAZOLE. [Suspect]
     Active Substance: ESOMEPRAZOLE MAGNESIUM
     Indication: GASTROOESOPHAGEAL REFLUX DISEASE
     Route: 048
  2. PROAIR HFA [Concomitant]
     Active Substance: ALBUTEROL SULFATE
     Indication: ASTHMA
     Dosage: AS REQUIRED
     Route: 055
     Dates: start: 202003
  3. HYDROXYZINEPAMOATE [Concomitant]
     Indication: ANXIETY
     Route: 048
  4. ESTRADIOL. [Concomitant]
     Active Substance: ESTRADIOL
     Indication: HORMONE THERAPY
     Route: 061
  5. ESTRADIOL. [Concomitant]
     Active Substance: ESTRADIOL
     Indication: HORMONE THERAPY
     Route: 061
  6. LISINOPRIL. [Suspect]
     Active Substance: LISINOPRIL
     Indication: HYPERTENSION
     Route: 048
  7. SYMBICORT [Suspect]
     Active Substance: BUDESONIDE\FORMOTEROL FUMARATE DIHYDRATE
     Indication: ASTHMA
     Dosage: 160/4.5 MCG 2 PUFFS TWICE DAILY
     Route: 055
     Dates: start: 202003
  8. FLUTICASONE OTC [Concomitant]
     Indication: PULMONARY CONGESTION
     Route: 045

REACTIONS (19)
  - Blood pressure fluctuation [Not Recovered/Not Resolved]
  - Gastrooesophageal reflux disease [Unknown]
  - Weight increased [Not Recovered/Not Resolved]
  - Wheezing [Not Recovered/Not Resolved]
  - Feeling hot [Unknown]
  - Polyp [Unknown]
  - Candida infection [Recovered/Resolved]
  - Asthma [Not Recovered/Not Resolved]
  - Multiple allergies [Not Recovered/Not Resolved]
  - Nasal congestion [Unknown]
  - Secretion discharge [Unknown]
  - Abdominal discomfort [Unknown]
  - Somnolence [Unknown]
  - Eosinophilia [Unknown]
  - Hypertrophic cardiomyopathy [Not Recovered/Not Resolved]
  - Incorrect dose administered [Recovered/Resolved]
  - Mitral valve incompetence [Not Recovered/Not Resolved]
  - Memory impairment [Unknown]
  - Cardiac murmur [Not Recovered/Not Resolved]

NARRATIVE: CASE EVENT DATE: 2018
